FAERS Safety Report 4821481-5 (Version None)
Quarter: 2005Q4

REPORT INFORMATION
  Report Type: 
  Country: None (occurrence: None)
  Receive Date: 20051107
  Receipt Date: 20050519
  Transmission Date: 20060501
  Serious: Yes (Death, Hospitalization)
  Sender: FDA-Public Use
  Company Number: US-GLAXOSMITHKLINE-A0559964A

PATIENT
  Age: 60 Year
  Sex: Female

DRUGS (6)
  1. PAXIL [Suspect]
     Indication: DEPRESSION
     Dosage: 20MG PER DAY
     Route: 048
     Dates: start: 20030818
  2. AVANDIA [Concomitant]
  3. ZESTRIL [Concomitant]
  4. AMLODIPINE [Concomitant]
  5. LISINOPRIL [Concomitant]
  6. TOPROL-XL [Concomitant]

REACTIONS (11)
  - ABNORMAL BEHAVIOUR [None]
  - ANOREXIA [None]
  - COMPLETED SUICIDE [None]
  - DEPRESSION [None]
  - FORMICATION [None]
  - HALLUCINATION, AUDITORY [None]
  - IMPAIRED SELF-CARE [None]
  - MENTAL DISORDER [None]
  - NERVOUSNESS [None]
  - NIGHTMARE [None]
  - SYNCOPE [None]
